FAERS Safety Report 7654993-X (Version None)
Quarter: 2011Q3

REPORT INFORMATION
  Report Type: 
  Country: None (occurrence: None)
  Receive Date: 20110804
  Receipt Date: 20110801
  Transmission Date: 20111222
  Serious: Yes (Death, Hospitalization)
  Sender: FDA-Public Use
  Company Number: PHHY2011BR69478

PATIENT
  Sex: Female

DRUGS (2)
  1. EXELON [Suspect]
     Dosage: 18MG/10CM2
     Route: 062
  2. EXELON [Suspect]
     Indication: DEMENTIA ALZHEIMER'S TYPE
     Dosage: 1 DF, QD
     Route: 048
     Dates: start: 20080901

REACTIONS (7)
  - CEREBROVASCULAR ACCIDENT [None]
  - RESPIRATORY FAILURE [None]
  - COMA [None]
  - NAUSEA [None]
  - VOMITING [None]
  - ABASIA [None]
  - ASTHENIA [None]
